FAERS Safety Report 6417113-5 (Version None)
Quarter: 2009Q4

REPORT INFORMATION
  Report Type: 
  Country: None (occurrence: None)
  Receive Date: 20091026
  Receipt Date: 20091013
  Transmission Date: 20100525
  Serious: Yes (Hospitalization, Other)
  Sender: FDA-Public Use
  Company Number: 2009AL006699

PATIENT
  Age: 42 Year
  Sex: Female

DRUGS (6)
  1. TRAMADOL HYDROCHLORIDE [Suspect]
     Indication: HERNIA PAIN
     Dosage: 600 MG; QD;
     Dates: start: 20090715, end: 20090908
  2. TRAMADOL HYDROCHLORIDE [Suspect]
     Indication: MYALGIA
     Dosage: 600 MG; QD;
     Dates: start: 20090715, end: 20090908
  3. PAROXETINE [Concomitant]
  4. OXAZEPAM [Concomitant]
  5. METHYLPHENIDATE HCL [Concomitant]
  6. NITRAZEPAM [Concomitant]

REACTIONS (2)
  - INTENTIONAL SELF-INJURY [None]
  - PERSONALITY CHANGE [None]
